FAERS Safety Report 8011086-X (Version None)
Quarter: 2011Q4

REPORT INFORMATION
  Report Type: 
  Country: None (occurrence: None)
  Receive Date: 20111228
  Receipt Date: 20111227
  Transmission Date: 20120403
  Serious: Yes (Life-Threatening, Hospitalization)
  Sender: FDA-Public Use
  Company Number: JP-B.I. PHARMACEUTICALS,INC./RIDGEFIELD-2011-BP-27690NB

PATIENT
  Sex: Male
  Weight: 61 kg

DRUGS (10)
  1. ISOSORBIDE MONONITRATE [Concomitant]
     Indication: MYOCARDIAL ISCHAEMIA
     Dosage: 40 MG
     Route: 048
     Dates: start: 20010101
  2. SIGMART [Concomitant]
     Indication: MYOCARDIAL ISCHAEMIA
     Dosage: 15 MG
     Route: 048
     Dates: start: 20010101
  3. CLARITHROMYCIN [Concomitant]
     Route: 065
  4. LEVOFLOXACIN [Concomitant]
     Route: 065
  5. NORVASC [Concomitant]
     Indication: HYPERTENSION
     Dosage: 5 MG
     Route: 048
     Dates: start: 20010101
  6. METFORMIN HCL [Concomitant]
     Indication: DIABETES MELLITUS
     Dosage: 500 MG
     Route: 048
     Dates: start: 20110907
  7. LOSARTAN POTASSIUM [Concomitant]
     Indication: HYPERTENSION
     Dosage: 50 MG
     Route: 048
     Dates: start: 20020101
  8. BISOPROLOL FUMARATE [Concomitant]
     Indication: ATRIAL FIBRILLATION
     Dosage: 2.5 MG
     Route: 048
     Dates: start: 20110713
  9. ASPIRIN [Concomitant]
     Indication: MYOCARDIAL ISCHAEMIA
     Dosage: 100 MG
     Route: 048
     Dates: start: 20010101
  10. PRADAXA [Suspect]
     Indication: ATRIAL FIBRILLATION
     Dosage: 220 MG
     Route: 048
     Dates: start: 20110713, end: 20111201

REACTIONS (1)
  - INTERSTITIAL LUNG DISEASE [None]
